FAERS Safety Report 19926075 (Version 1)
Quarter: 2021Q4

REPORT INFORMATION
  Report Type: Spontaneous
  Country: US (occurrence: US)
  Receive Date: 20211006
  Receipt Date: 20211006
  Transmission Date: 20220303
  Serious: Yes (Other)
  Sender: FDA-Public Use
  Company Number: US-ALLERGAN-2133883US

PATIENT
  Sex: Female

DRUGS (3)
  1. CANASA [Suspect]
     Active Substance: MESALAMINE
     Indication: Proctitis
     Dosage: 1 DF  2-3 TIMES A WEEK
  2. CANASA [Suspect]
     Active Substance: MESALAMINE
     Indication: Colitis
     Dosage: 1 DF EVERY DAY DURING FLARE-UPS
  3. BIRTHCONTROL [Concomitant]

REACTIONS (7)
  - Haemorrhage [Unknown]
  - Pain [Not Recovered/Not Resolved]
  - Condition aggravated [Not Recovered/Not Resolved]
  - Malaise [Not Recovered/Not Resolved]
  - Off label use [Unknown]
  - Therapy interrupted [Unknown]
  - Fatigue [Unknown]

NARRATIVE: CASE EVENT DATE: 20210101
